FAERS Safety Report 20246426 (Version 1)
Quarter: 2021Q4

REPORT INFORMATION
  Report Type: Spontaneous
  Country: US (occurrence: None)
  Receive Date: 20211228
  Receipt Date: 20211228
  Transmission Date: 20220304
  Serious: Yes (Life-Threatening, Other)
  Sender: FDA-Public Use
  Company Number: None

PATIENT
  Age: 31 Year
  Sex: Female

DRUGS (2)
  1. BAMLANIVIMAB [Suspect]
     Active Substance: BAMLANIVIMAB
     Indication: SARS-CoV-2 test positive
     Dosage: FREQUENCY : ONCE;?
     Route: 042
     Dates: start: 20211228, end: 20211228
  2. ETESEVIMAB [Suspect]
     Active Substance: ETESEVIMAB
     Indication: SARS-CoV-2 test positive
     Dosage: FREQUENCY : ONCE;?
     Route: 042
     Dates: start: 20211228, end: 20211228

REACTIONS (2)
  - Paraesthesia [None]
  - Infusion related reaction [None]

NARRATIVE: CASE EVENT DATE: 20211228
